FAERS Safety Report 4748652-0 (Version None)
Quarter: 2005Q3

REPORT INFORMATION
  Report Type: 
  Country: None (occurrence: None)
  Receive Date: 20050816
  Receipt Date: 20050729
  Transmission Date: 20060218
  Serious: Yes (Death, Other)
  Sender: FDA-Public Use
  Company Number: WAES 0508USA00475

PATIENT
  Age: 18 Year
  Sex: Male

DRUGS (4)
  1. INJ ELSPAR (ASPARGINASE) [Suspect]
     Indication: ACUTE LYMPHOCYTIC LEUKAEMIA
     Dosage: 2000 IU/Q12H
  2. DEXAMETHASONE [Concomitant]
  3. PIRARUBICIN [Concomitant]
  4. VINCRISTINE SULFATE [Concomitant]

REACTIONS (7)
  - ANTITHROMBIN III DECREASED [None]
  - BLOOD FIBRINOGEN DECREASED [None]
  - CONDITION AGGRAVATED [None]
  - FIBRIN D DIMER INCREASED [None]
  - HAEMORRHAGIC CEREBRAL INFARCTION [None]
  - MULTI-ORGAN FAILURE [None]
  - TONIC CONVULSION [None]
